FAERS Safety Report 4785588-3 (Version None)
Quarter: 2005Q4

REPORT INFORMATION
  Report Type: 
  Country: None (occurrence: None)
  Receive Date: 20051003
  Receipt Date: 20050926
  Transmission Date: 20060501
  Serious: Yes (Congenital Anomaly)
  Sender: FDA-Public Use
  Company Number: CH-GLAXOSMITHKLINE-B0395444A

PATIENT

DRUGS (3)
  1. DEROXAT [Suspect]
     Dosage: 20MG PER DAY
  2. PSYCHOTHERAPY [Concomitant]
  3. CAFERGOT [Concomitant]

REACTIONS (3)
  - DEFORMITY THORAX [None]
  - DRUG EXPOSURE DURING PREGNANCY [None]
  - LIMB MALFORMATION [None]
